FAERS Safety Report 22175873 (Version 1)
Quarter: 2023Q2

REPORT INFORMATION
  Report Type: Spontaneous
  Country: US (occurrence: None)
  Receive Date: 20230404
  Receipt Date: 20230404
  Transmission Date: 20230722
  Serious: Yes (Life-Threatening, Hospitalization, Disabling)
  Sender: FDA-Public Use
  Company Number: None

PATIENT
  Age: 49 Year
  Sex: Male
  Weight: 81 kg

DRUGS (5)
  1. AIMOVIG [Suspect]
     Active Substance: ERENUMAB-AOOE
     Indication: Migraine
     Dosage: OTHER QUANTITY : 1 INJECTION(S);?OTHER FREQUENCY : ONCE A MONTH;?
     Route: 030
     Dates: start: 20221215, end: 20230215
  2. Pramipexol 1mg daily [Concomitant]
  3. Sumatriptan 50mg as needed [Concomitant]
  4. Famotidone 20mg twice daily [Concomitant]
  5. Loratadine 10mg twice daily [Concomitant]

REACTIONS (5)
  - Drug hypersensitivity [None]
  - Pain in jaw [None]
  - Heart rate increased [None]
  - Insomnia [None]
  - Panic disorder [None]

NARRATIVE: CASE EVENT DATE: 20230220
